FAERS Safety Report 20735717 (Version 1)
Quarter: 2022Q2

REPORT INFORMATION
  Report Type: Report from Study
  Country: US (occurrence: US)
  Receive Date: 20220421
  Receipt Date: 20220421
  Transmission Date: 20220721
  Serious: No
  Sender: FDA-Public Use
  Company Number: US-NOVARTISTESTPH-NVSC2022US092156

PATIENT
  Age: 62 Year
  Sex: Female
  Weight: 104.33 kg

DRUGS (1)
  1. ORPHENADRINE CITRATE [Suspect]
     Active Substance: ORPHENADRINE CITRATE
     Indication: Product used for unknown indication
     Dosage: 100 MG, BID
     Route: 048
     Dates: start: 20181001

REACTIONS (3)
  - Asthenia [Unknown]
  - Tremor [Unknown]
  - Dizziness [Unknown]

NARRATIVE: CASE EVENT DATE: 20220101
